FAERS Safety Report 8126465-X (Version None)
Quarter: 2012Q1

REPORT INFORMATION
  Report Type: 
  Country: None (occurrence: None)
  Receive Date: 20120209
  Receipt Date: 20111025
  Transmission Date: 20120608
  Serious: Yes (Hospitalization, Other)
  Sender: FDA-Public Use
  Company Number: PHHY2011RU115557

PATIENT
  Age: 29 Year
  Sex: Female

DRUGS (1)
  1. TEGRETOL [Suspect]
     Dosage: UNK
     Route: 048

REACTIONS (4)
  - PYREXIA [None]
  - POLYARTHRITIS [None]
  - JOINT STIFFNESS [None]
  - ARTHRALGIA [None]
